FAERS Safety Report 9931572 (Version 2)
Quarter: 2014Q2

REPORT INFORMATION
  Report Type: Report from Study
  Country: HU (occurrence: HU)
  Receive Date: 20140228
  Receipt Date: 20140515
  Transmission Date: 20141212
  Serious: Yes (Hospitalization, Other)
  Sender: FDA-Public Use
  Company Number: HU-VERTEX PHARMACEUTICALS INC-2014-001014

PATIENT
  Age: 62 Year
  Sex: Female
  Weight: 49 kg

DRUGS (3)
  1. VX-950 (TELAPREVIR) [Suspect]
     Indication: HEPATITIS C
     Dosage: 2250 MG, TID
     Route: 048
     Dates: start: 20130104, end: 20130329
  2. PEG-INTERFERON [Suspect]
     Indication: HEPATITIS C
     Dosage: 180 ?G, QW
     Route: 065
     Dates: start: 20130104, end: 20131206
  3. RIBAVIRIN [Suspect]
     Indication: HEPATITIS C
     Dosage: 600 MG, BID
     Route: 048
     Dates: start: 20130104, end: 20131206

REACTIONS (2)
  - Metastases to liver [Not Recovered/Not Resolved]
  - Cholangiocarcinoma [Unknown]
